FAERS Safety Report 6408005-6 (Version None)
Quarter: 2009Q4

REPORT INFORMATION
  Report Type: 
  Country: None (occurrence: None)
  Receive Date: 20091021
  Receipt Date: 20090916
  Transmission Date: 20100525
  Serious: Yes (Other)
  Sender: FDA-Public Use
  Company Number: US-BIOGENIDEC-2009BI030797

PATIENT
  Age: 32 Year
  Sex: Female

DRUGS (3)
  1. TYSABRI [Suspect]
     Indication: MULTIPLE SCLEROSIS
     Route: 042
     Dates: start: 20041213, end: 20041213
  2. TYSABRI [Suspect]
     Route: 042
     Dates: start: 20070301, end: 20080311
  3. TYSABRI [Suspect]
     Route: 042
     Dates: start: 20090720

REACTIONS (1)
  - ABORTION SPONTANEOUS [None]
